FAERS Safety Report 18277763 (Version 1)
Quarter: 2020Q3

REPORT INFORMATION
  Report Type: Spontaneous
  Country: US (occurrence: US)
  Receive Date: 20200916
  Receipt Date: 20200916
  Transmission Date: 20201103
  Serious: Yes (Other)
  Sender: FDA-Public Use
  Company Number: None

PATIENT
  Age: 60 Year
  Sex: Female
  Weight: 49.9 kg

DRUGS (2)
  1. TOBRAMYCIN AND DEXAMETHASONE [Suspect]
     Active Substance: DEXAMETHASONE\TOBRAMYCIN
     Indication: EYE DISCHARGE
     Dosage: ?          QUANTITY:0.3 % PERCENT;OTHER FREQUENCY:4 X PER DAY, THEN ;?
     Route: 047
     Dates: start: 20200604, end: 20200620
  2. TOBRAMYCIN AND DEXAMETHASONE [Suspect]
     Active Substance: DEXAMETHASONE\TOBRAMYCIN
     Indication: CORNEAL ABRASION
     Dosage: ?          QUANTITY:0.3 % PERCENT;OTHER FREQUENCY:4 X PER DAY, THEN ;?
     Route: 047
     Dates: start: 20200604, end: 20200620

REACTIONS (9)
  - Dry eye [None]
  - Madarosis [None]
  - Visual impairment [None]
  - Stress [None]
  - Ocular toxicity [None]
  - Abnormal sensation in eye [None]
  - Lacrimation increased [None]
  - Corneal abrasion [None]
  - Eye irritation [None]

NARRATIVE: CASE EVENT DATE: 20200619
